FAERS Safety Report 6443005-1 (Version None)
Quarter: 2009Q4

REPORT INFORMATION
  Report Type: 
  Country: None (occurrence: None)
  Receive Date: 20091117
  Receipt Date: 20091105
  Transmission Date: 20100525
  Serious: Yes (Hospitalization)
  Sender: FDA-Public Use
  Company Number: PHHY2009IT48460

PATIENT
  Sex: Female

DRUGS (3)
  1. ZOMETA [Suspect]
     Indication: MULTIPLE MYELOMA
     Dosage: 4 MG/VIALS
     Dates: start: 20040101, end: 20060101
  2. VELCADE [Concomitant]
     Dosage: 2 MG/EVERY THREE DAYS
  3. DECADRON [Concomitant]
     Dosage: 20 MG/EVERY TWO DAYS

REACTIONS (2)
  - ABSCESS ORAL [None]
  - OSTEONECROSIS [None]
